FAERS Safety Report 16836377 (Version 19)
Quarter: 2024Q4

REPORT INFORMATION
  Report Type: Spontaneous
  Country: CA (occurrence: CA)
  Receive Date: 20190921
  Receipt Date: 20241026
  Transmission Date: 20250115
  Serious: Yes (Other)
  Sender: AUROBINDO
  Company Number: CA-AUROBINDO-AUR-APL-2019-059963

PATIENT
  Age: 53 Year
  Sex: Male

DRUGS (61)
  1. DULOXETINE [Suspect]
     Active Substance: DULOXETINE
     Indication: Migraine
     Dosage: 60 MILLIGRAM
     Route: 048
  2. DULOXETINE [Suspect]
     Active Substance: DULOXETINE
     Dosage: 600 MILLIGRAM
     Route: 065
  3. GABAPENTIN [Suspect]
     Active Substance: GABAPENTIN
     Indication: Product used for unknown indication
     Dosage: UNK
     Route: 065
  4. ONDANSETRON [Suspect]
     Active Substance: ONDANSETRON
     Indication: Migraine
     Dosage: UNK
     Route: 065
  5. TRAMADOL HYDROCHLORIDE [Suspect]
     Active Substance: TRAMADOL HYDROCHLORIDE
     Indication: Migraine
     Dosage: UNK
     Route: 065
  6. ACETAMINOPHEN\CODEINE PHOSPHATE [Suspect]
     Active Substance: ACETAMINOPHEN\CODEINE PHOSPHATE
     Indication: Product used for unknown indication
     Dosage: UNK
     Route: 065
  7. ACETAMINOPHEN AND CODEINE [Suspect]
     Active Substance: ACETAMINOPHEN\CODEINE PHOSPHATE
     Indication: Product used for unknown indication
     Dosage: UNK
     Route: 065
  8. ACETAMINOPHEN\OXYCODONE HYDROCHLORIDE [Suspect]
     Active Substance: ACETAMINOPHEN\OXYCODONE HYDROCHLORIDE
     Indication: Migraine
     Dosage: UNK
     Route: 048
  9. ACETAMINOPHEN\TRAMADOL HYDROCHLORIDE [Suspect]
     Active Substance: ACETAMINOPHEN\TRAMADOL HYDROCHLORIDE
     Indication: Migraine
     Dosage: UNK
     Route: 065
  10. ACETAMINOPHEN\TRAMADOL HYDROCHLORIDE [Suspect]
     Active Substance: ACETAMINOPHEN\TRAMADOL HYDROCHLORIDE
     Dosage: UNK
     Route: 065
  11. AMITRIPTYLINE [Suspect]
     Active Substance: AMITRIPTYLINE
     Indication: Product used for unknown indication
     Dosage: UNK
     Route: 065
  12. ACETAMINOPHEN [Suspect]
     Active Substance: ACETAMINOPHEN
     Indication: Migraine
     Dosage: UNK
     Route: 048
  13. ACETAMINOPHEN [Suspect]
     Active Substance: ACETAMINOPHEN
     Indication: Migraine
     Dosage: UNK
     Route: 048
  14. AXERT [Suspect]
     Active Substance: ALMOTRIPTAN MALATE
     Indication: Product used for unknown indication
     Dosage: UNK
     Route: 065
  15. ALMOTRIPTAN [Suspect]
     Active Substance: ALMOTRIPTAN
     Indication: Product used for unknown indication
     Dosage: UNK
     Route: 065
  16. BOTOX [Suspect]
     Active Substance: ONABOTULINUMTOXINA
     Indication: Product used for unknown indication
     Dosage: 200 MILLIGRAM
     Route: 030
  17. BOTOX [Suspect]
     Active Substance: ONABOTULINUMTOXINA
     Dosage: UNK (TOTAL)
     Route: 065
  18. BOTOX [Suspect]
     Active Substance: ONABOTULINUMTOXINA
     Dosage: 1 DOSAGE FORM, ONCE A DAY
     Route: 065
  19. BOTOX [Suspect]
     Active Substance: ONABOTULINUMTOXINA
     Dosage: 220 MILLIGRAM
     Route: 065
  20. BOTULINUM TOXIN NOS [Suspect]
     Active Substance: BOTULINUM TOXIN NOS
     Indication: Product used for unknown indication
     Dosage: 200 MILLIGRAM
     Route: 065
  21. BOTULINUM TOXIN NOS [Suspect]
     Active Substance: BOTULINUM TOXIN NOS
     Dosage: 200 MILLIGRAM
     Route: 030
  22. BOTULINUM TOXIN NOS [Suspect]
     Active Substance: BOTULINUM TOXIN NOS
     Dosage: UNK
     Route: 005
  23. CELEBREX [Suspect]
     Active Substance: CELECOXIB
     Indication: Arthritis
     Dosage: 200 MILLIGRAM
     Route: 065
  24. CODEINE [Suspect]
     Active Substance: CODEINE
     Indication: Migraine
     Dosage: UNK
     Route: 048
  25. CODEINE [Suspect]
     Active Substance: CODEINE
     Indication: Migraine
     Dosage: UNK
     Route: 065
  26. DEMEROL [Suspect]
     Active Substance: MEPERIDINE HYDROCHLORIDE
     Indication: Product used for unknown indication
     Dosage: 60 MILLIGRAM
     Route: 065
  27. DIHYDROERGOTAMINE [Suspect]
     Active Substance: DIHYDROERGOTAMINE
     Indication: Migraine
     Dosage: UNK
     Route: 065
  28. DIHYDROERGOTAMINE [Suspect]
     Active Substance: DIHYDROERGOTAMINE
     Indication: Migraine
     Dosage: UNK
     Route: 065
  29. DIHYDROERGOTAMINE [Suspect]
     Active Substance: DIHYDROERGOTAMINE
     Indication: Migraine
     Dosage: UNK
     Route: 065
  30. DICLOFENAC [Suspect]
     Active Substance: DICLOFENAC
     Indication: Migraine
     Dosage: UNK
     Route: 065
  31. EFFEXOR [Suspect]
     Active Substance: VENLAFAXINE HYDROCHLORIDE
     Indication: Migraine
     Dosage: UNK
     Route: 065
  32. ENDOCET [Suspect]
     Active Substance: ACETAMINOPHEN\OXYCODONE HYDROCHLORIDE
     Indication: Migraine
     Dosage: UNK
     Route: 065
  33. ESOMEPRAZOLE MAGNESIUM [Suspect]
     Active Substance: ESOMEPRAZOLE MAGNESIUM
     Indication: Product used for unknown indication
     Dosage: UNK
     Route: 048
  34. ESOMEPRAZOLE MAGNESIUM\NAPROXEN [Suspect]
     Active Substance: ESOMEPRAZOLE MAGNESIUM\NAPROXEN
     Indication: Product used for unknown indication
     Dosage: UNK
     Route: 048
  35. HYDROMORPHONE [Suspect]
     Active Substance: HYDROMORPHONE
     Indication: Migraine
     Dosage: UNK
     Route: 030
  36. IBUPROFEN [Suspect]
     Active Substance: IBUPROFEN
     Indication: Product used for unknown indication
     Dosage: UNK
     Route: 065
  37. KETAMINE [Suspect]
     Active Substance: KETAMINE
     Indication: Migraine
     Dosage: UNK
     Route: 030
  38. MAXALT [Suspect]
     Active Substance: RIZATRIPTAN BENZOATE
     Indication: Product used for unknown indication
     Dosage: UNK
     Route: 065
  39. MORPHINE [Suspect]
     Active Substance: MORPHINE
     Indication: Migraine
     Dosage: UNK
     Route: 065
  40. NAPROXEN [Suspect]
     Active Substance: NAPROXEN
     Indication: Product used for unknown indication
     Dosage: UNK
     Route: 048
  41. NORTRIPTYLINE [Suspect]
     Active Substance: NORTRIPTYLINE
     Indication: Migraine
     Dosage: UNK
     Route: 065
  42. PROPRANOLOL [Suspect]
     Active Substance: PROPRANOLOL HYDROCHLORIDE
     Indication: Migraine
     Dosage: UNK
     Route: 042
  43. TENORETIC [Suspect]
     Active Substance: ATENOLOL\CHLORTHALIDONE
     Indication: Product used for unknown indication
     Dosage: 15 MILLIGRAM
     Route: 048
  44. TENORETIC [Suspect]
     Active Substance: ATENOLOL\CHLORTHALIDONE
     Dosage: 150 MILLIGRAM
     Route: 048
  45. DULOXETINE [Suspect]
     Active Substance: DULOXETINE
     Indication: Migraine
     Dosage: 60 MILLIGRAM
     Route: 048
  46. DULOXETINE [Suspect]
     Active Substance: DULOXETINE
     Dosage: 600 MILLIGRAM
     Route: 065
  47. TOPAMAX [Suspect]
     Active Substance: TOPIRAMATE
     Indication: Migraine
     Dosage: UNK
     Route: 048
  48. TORADOL [Suspect]
     Active Substance: KETOROLAC TROMETHAMINE
     Indication: Product used for unknown indication
     Dosage: UNK
     Route: 065
  49. ACETAMINOPHEN\TRAMADOL [Suspect]
     Active Substance: ACETAMINOPHEN\TRAMADOL
     Indication: Migraine
     Dosage: 15 MILLIGRAM
     Route: 048
  50. TRIAMCINOLONE ACETONIDE [Suspect]
     Active Substance: TRIAMCINOLONE ACETONIDE
     Indication: Migraine
     Dosage: UNK
     Route: 065
  51. TRIAMCINOLONE ACETONIDE [Suspect]
     Active Substance: TRIAMCINOLONE ACETONIDE
     Indication: Migraine
     Dosage: UNK
     Route: 065
  52. TRIAMCINOLONE ACETONIDE [Suspect]
     Active Substance: TRIAMCINOLONE ACETONIDE
     Indication: Product used for unknown indication
     Dosage: UNK
     Route: 014
  53. TYLENOL [Suspect]
     Active Substance: ACETAMINOPHEN
     Indication: Product used for unknown indication
     Dosage: UNK
     Route: 065
  54. VENLAFAXINE [Suspect]
     Active Substance: VENLAFAXINE HYDROCHLORIDE
     Indication: Migraine
     Dosage: UNK
     Route: 065
  55. VENLAFAXINE [Suspect]
     Active Substance: VENLAFAXINE HYDROCHLORIDE
     Indication: Migraine
     Dosage: UNK
     Route: 065
  56. VIMOVO [Suspect]
     Active Substance: ESOMEPRAZOLE MAGNESIUM\NAPROXEN
     Indication: Product used for unknown indication
     Dosage: UNK
     Route: 048
  57. VOLTAREN [Suspect]
     Active Substance: DICLOFENAC SODIUM
     Indication: Migraine
     Dosage: UNK
     Route: 065
  58. VOLTAREN [Suspect]
     Active Substance: DICLOFENAC SODIUM
     Indication: Migraine
     Dosage: UNK
     Route: 065
  59. VOLTAREN [Suspect]
     Active Substance: DICLOFENAC SODIUM
     Indication: Migraine
     Dosage: UNK
     Route: 065
  60. VIMOVO [Suspect]
     Active Substance: ESOMEPRAZOLE MAGNESIUM\NAPROXEN
     Indication: Product used for unknown indication
     Dosage: UNK
     Route: 065
  61. ZOFRAN [Suspect]
     Active Substance: ONDANSETRON HYDROCHLORIDE
     Indication: Migraine
     Dosage: UNK
     Route: 065

REACTIONS (9)
  - Nephrolithiasis [Unknown]
  - Sedation [Unknown]
  - Hyperhidrosis [Unknown]
  - Nightmare [Unknown]
  - Nausea [Unknown]
  - Drug ineffective [Unknown]
  - Off label use [Unknown]
  - Product use in unapproved indication [Unknown]
  - Product used for unknown indication [Unknown]
